FAERS Safety Report 12555682 (Version 1)
Quarter: 2016Q3

REPORT INFORMATION
  Report Type: Spontaneous
  Country: US (occurrence: None)
  Receive Date: 20160713
  Receipt Date: 20160713
  Transmission Date: 20161109
  Serious: Yes (Disabling)
  Sender: FDA-Public Use
  Company Number: None

PATIENT
  Age: 79 Year
  Sex: Female
  Weight: 72.58 kg

DRUGS (13)
  1. HYDROCHLORTHIAZIDE [Concomitant]
     Active Substance: HYDROCHLOROTHIAZIDE
  2. CRESTOR [Suspect]
     Active Substance: ROSUVASTATIN CALCIUM
     Indication: BLOOD CHOLESTEROL INCREASED
     Dosage: 45 TABLET(S) ONCE A DAY TAKEN BY MOUTH
     Route: 048
     Dates: start: 20060710, end: 20160623
  3. VITAMIN D3 [Concomitant]
     Active Substance: CHOLECALCIFEROL
  4. VITAMIN K2 WITH D3 [Concomitant]
  5. FISH OIL [Concomitant]
     Active Substance: FISH OIL
  6. ATENOLOL. [Concomitant]
     Active Substance: ATENOLOL
  7. CENTRUM SILVER [Concomitant]
     Active Substance: MINERALS\VITAMINS
  8. CPAP [Concomitant]
     Active Substance: DEVICE
  9. TUMERIC [Concomitant]
     Active Substance: TURMERIC
  10. OCUVITE [Concomitant]
     Active Substance: VITAMINS
  11. AMLODIPINE [Concomitant]
     Active Substance: AMLODIPINE BESYLATE
  12. CALCIUM CITRATE [Concomitant]
     Active Substance: CALCIUM CITRATE
  13. COQ10 [Concomitant]
     Active Substance: UBIDECARENONE

REACTIONS (6)
  - Tendonitis [None]
  - Iliotibial band syndrome [None]
  - Myalgia [None]
  - Arthralgia [None]
  - Pain in extremity [None]
  - Pain [None]

NARRATIVE: CASE EVENT DATE: 20160701
